FAERS Safety Report 4855292-1 (Version None)
Quarter: 2005Q4

REPORT INFORMATION
  Report Type: 
  Country: None (occurrence: None)
  Receive Date: 20051215
  Receipt Date: 20050707
  Transmission Date: 20060501
  Serious: Yes (Hospitalization, Other)
  Sender: FDA-Public Use
  Company Number: US-MERCK-0507USA01350

PATIENT
  Age: 75 Year
  Sex: Male
  Weight: 80 kg

DRUGS (20)
  1. VIOXX [Suspect]
     Indication: OSTEOARTHRITIS
     Route: 048
     Dates: start: 20010401, end: 20040101
  2. VIOXX [Suspect]
     Indication: RHEUMATOID ARTHRITIS
     Route: 048
     Dates: start: 20010401, end: 20040101
  3. DOCUSATE SODIUM [Concomitant]
     Route: 065
  4. RANITIDINE [Concomitant]
     Route: 065
  5. ACETAMINOPHEN [Concomitant]
     Route: 065
     Dates: start: 19850101
  6. CODEINE [Concomitant]
     Route: 065
  7. ALBUTEROL [Concomitant]
     Route: 065
  8. AMOXICILLIN [Concomitant]
     Route: 065
  9. BECLOMETHASONE DIPROPIONATE [Concomitant]
     Route: 065
  10. BUSPIRONE HYDROCHLORIDE [Concomitant]
     Route: 065
  11. DILTIAZEM HYDROCHLORIDE [Concomitant]
     Route: 065
  12. FUROSEMIDE [Concomitant]
     Route: 065
     Dates: start: 20010101, end: 20030101
  13. IPRATROPIUM BROMIDE [Concomitant]
     Route: 065
  14. METHYL SALICYLATE [Concomitant]
     Route: 065
  15. MECLIZINE [Concomitant]
     Route: 065
  16. MENTHOL [Concomitant]
     Route: 065
  17. MILK OF MAGNESIA TAB [Concomitant]
     Route: 065
  18. NITROGLYCERIN [Concomitant]
     Route: 065
  19. OXYMETAZOLINE HYDROCHLORIDE [Concomitant]
     Route: 065
  20. GUAIFENESIN [Concomitant]
     Route: 065

REACTIONS (6)
  - BLINDNESS [None]
  - CHEST PAIN [None]
  - DYSPNOEA [None]
  - HOSPITALISATION [None]
  - MYOCARDIAL INFARCTION [None]
  - SPEECH DISORDER [None]
